FAERS Safety Report 7308556-6 (Version None)
Quarter: 2011Q1

REPORT INFORMATION
  Report Type: 
  Country: None (occurrence: None)
  Receive Date: 20110211
  Receipt Date: 20110201
  Transmission Date: 20110831
  Serious: Yes (Hospitalization)
  Sender: FDA-Public Use
  Company Number: 2011MA001085

PATIENT
  Age: 86 Year
  Sex: Male

DRUGS (9)
  1. AMLODIPINE BESYLATE [Suspect]
     Indication: HYPERTENSION
     Dosage: 5 MG;QD;PO
     Route: 048
  2. PREV MEDS [Concomitant]
  3. LANSOPRAZOLE [Concomitant]
  4. SCIOIDERN TTS (HYOSCINE) [Suspect]
     Indication: SALIVARY HYPERSECRETION
     Dosage: 1 DF;Q72H;TDER
     Route: 062
     Dates: start: 20101214, end: 20101230
  5. SERETIDE [Concomitant]
  6. ASPIRIN [Concomitant]
  7. BENDROFLUMETHIAZIDE (BENDROFLUMETHIAZIDE) [Suspect]
     Dosage: PO
     Route: 048
  8. TIOTROPIUM (TIOTROPIUM) [Suspect]
     Indication: CHRONIC OBSTRUCTIVE PULMONARY DISEASE
     Dosage: 18 MCG;QD
  9. DOCUSATE SODIUM [Concomitant]

REACTIONS (3)
  - LOSS OF CONSCIOUSNESS [None]
  - PRODUCTIVE COUGH [None]
  - DRY MOUTH [None]
